FAERS Safety Report 8984529 (Version 1)
Quarter: 2012Q4

REPORT INFORMATION
  Report Type: 
  Country: EC (occurrence: EC)
  Receive Date: 20121225
  Receipt Date: 20121225
  Transmission Date: 20130627
  Serious: Yes (Other)
  Sender: FDA-Public Use
  Company Number: PHHY2012EC118015

PATIENT
  Age: 47 Year
  Sex: Female

DRUGS (2)
  1. ACLASTA [Suspect]
     Indication: OSTEOPOROSIS
     Dosage: UNK
     Route: 042
     Dates: start: 2009
  2. ACLASTA [Suspect]
     Dosage: UNK
     Route: 042
     Dates: start: 2011

REACTIONS (1)
  - VIIth nerve paralysis [Recovering/Resolving]
